FAERS Safety Report 7559483-0 (Version None)
Quarter: 2011Q2

REPORT INFORMATION
  Report Type: 
  Country: None (occurrence: None)
  Receive Date: 20110613
  Receipt Date: 20110531
  Transmission Date: 20111010
  Serious: Yes (Hospitalization)
  Sender: FDA-Public Use
  Company Number: 117772

PATIENT
  Age: 22 Year
  Sex: Female

DRUGS (3)
  1. CIPROFLOXACIN [Concomitant]
  2. PSEUDOTUMOR CEREBRI [Concomitant]
  3. CIPROFLOXACIN [Suspect]
     Indication: PYELONEPHRITIS

REACTIONS (6)
  - HEADACHE [None]
  - BENIGN INTRACRANIAL HYPERTENSION [None]
  - VISION BLURRED [None]
  - DIPLOPIA [None]
  - STRABISMUS [None]
  - PAPILLOEDEMA [None]
